FAERS Safety Report 25152673 (Version 1)
Quarter: 2025Q2

REPORT INFORMATION
  Report Type: Spontaneous
  Country: NL (occurrence: NL)
  Receive Date: 20250402
  Receipt Date: 20250402
  Transmission Date: 20250717
  Serious: Yes (Death, Life-Threatening)
  Sender: ABBVIE
  Company Number: None

PATIENT
  Age: 64 Year
  Sex: Male
  Weight: 75 kg

DRUGS (2)
  1. CITALOPRAM [Suspect]
     Active Substance: CITALOPRAM
     Indication: Depression
     Route: 048
  2. MIRTAZAPINE [Suspect]
     Active Substance: MIRTAZAPINE
     Indication: Depression
     Dosage: 1 X PER DAY 30 MG?MEDICINE PRESCRIBED BY DOCTOR: YES?STRENGTH: 30 MG
     Route: 048

REACTIONS (4)
  - Completed suicide [Fatal]
  - Depression [Fatal]
  - Memory impairment [Fatal]
  - Weight decreased [Fatal]
